FAERS Safety Report 9365048 (Version 2)
Quarter: 2013Q3

REPORT INFORMATION
  Report Type: Spontaneous
  Country: FR (occurrence: FR)
  Receive Date: 20130624
  Receipt Date: 20130710
  Transmission Date: 20140515
  Serious: Yes (Death, Hospitalization)
  Sender: FDA-Public Use
  Company Number: FR-PFIZER INC-2013183080

PATIENT
  Age: 93 Year
  Sex: Female

DRUGS (9)
  1. TAHOR [Suspect]
     Dosage: 20 MG, 1X/DAY
     Route: 048
     Dates: start: 2010
  2. SINGULAIR [Suspect]
     Dosage: UNK
     Route: 048
     Dates: start: 2010, end: 201303
  3. TARDYFERON [Suspect]
     Dosage: 80 MG, UNK
     Route: 048
     Dates: start: 2010, end: 201303
  4. CACIT D3 [Suspect]
     Dosage: 1 DF, 1X/DAY
     Route: 048
     Dates: start: 2010
  5. CHRONADALATE [Suspect]
     Dosage: 30 MG, 1X/DAY
     Route: 048
     Dates: start: 2010, end: 20130523
  6. DAFALGAN [Suspect]
     Dosage: 500 MG, 3X/DAY
     Route: 048
     Dates: start: 2010
  7. DISCOTRINE [Suspect]
     Dosage: 1 DF (10 MG/24 H), 1X/DAY
     Route: 062
     Dates: start: 2010
  8. INEXIUM [Suspect]
     Dosage: 20 MG, 1X/DAY
     Route: 048
     Dates: start: 2010
  9. PREVISCAN [Suspect]
     Dosage: 0.75 DF, 1X/DAY
     Route: 048
     Dates: start: 2010

REACTIONS (2)
  - Chronic obstructive pulmonary disease [Fatal]
  - Toxic skin eruption [Unknown]
